FAERS Safety Report 5174359-4 (Version None)
Quarter: 2006Q4

REPORT INFORMATION
  Report Type: 
  Country: None (occurrence: None)
  Receive Date: 20061206
  Receipt Date: 20061121
  Transmission Date: 20070319
  Serious: Yes (Hospitalization)
  Sender: FDA-Public Use
  Company Number: 229641

PATIENT
  Age: 62 Year
  Sex: Female
  Weight: 72.2 kg

DRUGS (4)
  1. RITUXIMAB (RITUXIMAB) CONC FOR SOLUTION FOR INFUSION [Suspect]
     Indication: SYSTEMIC LUPUS ERYTHEMATOSUS
     Dosage: 1000 MG, INTRAVENOUS
     Route: 042
     Dates: start: 20060718
  2. PREDNISONE TAB [Concomitant]
  3. IMURAN [Concomitant]
  4. COUMADIN [Concomitant]

REACTIONS (22)
  - ANAEMIA [None]
  - ARTERIOSCLEROSIS CORONARY ARTERY [None]
  - ATELECTASIS [None]
  - BACK PAIN [None]
  - BACTERIAL INFECTION [None]
  - BLOOD CREATININE INCREASED [None]
  - FAT TISSUE INCREASED [None]
  - FATIGUE [None]
  - GASTROINTESTINAL HAEMORRHAGE [None]
  - HAEMATURIA [None]
  - HAEMOLYTIC ANAEMIA [None]
  - HYPOVOLAEMIA [None]
  - INTERSTITIAL LUNG DISEASE [None]
  - ISCHAEMIA [None]
  - LUNG NEOPLASM [None]
  - MYCOBACTERIUM FORTUITUM INFECTION [None]
  - MYOCARDIAL INFARCTION [None]
  - NIGHT SWEATS [None]
  - NOCARDIOSIS [None]
  - PLEURAL EFFUSION [None]
  - PNEUMONIA BACTERIAL [None]
  - SUBCUTANEOUS ABSCESS [None]
